FAERS Safety Report 8596539-8 (Version None)
Quarter: 2012Q3

REPORT INFORMATION
  Report Type: 
  Country: None (occurrence: None)
  Receive Date: 20120706
  Receipt Date: 20120706
  Transmission Date: 20120928
  Serious: No
  Sender: FDA-Public Use
  Company Number: None

PATIENT
  Age: 66 Year
  Sex: Female
  Weight: 70.3075 kg

DRUGS (1)
  1. CYMBALTA [Suspect]
     Indication: ARTHRITIS
     Dosage: ONE DAILY PO
     Route: 048
     Dates: start: 20111115, end: 20120701

REACTIONS (7)
  - HYPERHIDROSIS [None]
  - PAIN [None]
  - NAUSEA [None]
  - DYSPEPSIA [None]
  - CONDITION AGGRAVATED [None]
  - CONSTIPATION [None]
  - INSOMNIA [None]
